FAERS Safety Report 16314282 (Version 1)
Quarter: 2019Q2

REPORT INFORMATION
  Report Type: Spontaneous
  Country: US (occurrence: US)
  Receive Date: 20190409
  Receipt Date: 20190409
  Transmission Date: 20190711
  Serious: No
  Sender: FDA-Public Use
  Company Number: None

PATIENT
  Age: 79 Year
  Sex: Female
  Weight: 74.84 kg

DRUGS (13)
  1. OMEPRAZOLE. [Concomitant]
     Active Substance: OMEPRAZOLE
  2. SERTRALINE [Concomitant]
     Active Substance: SERTRALINE HYDROCHLORIDE
  3. TIMOLOL. [Concomitant]
     Active Substance: TIMOLOL
  4. MULTIVITAMINS [Concomitant]
     Active Substance: VITAMINS
  5. CORTIZONE 10 [Concomitant]
     Active Substance: HYDROCORTISONE
  6. ASPERCREME NOS [Concomitant]
     Active Substance: MENTHOL\TROLAMINE SALICYLATE
  7. BREO ELLIPTA [Suspect]
     Active Substance: FLUTICASONE FUROATE\VILANTEROL TRIFENATATE
     Indication: ASTHMA
     Dosage: ?          QUANTITY:1 DF DOSAGE FORM;?
     Route: 048
  8. ANEFRIN NASAL SPRAY [Concomitant]
  9. PROBIOTIC [Concomitant]
     Active Substance: PROBIOTICS NOS
  10. ALPHAGAN P [Concomitant]
     Active Substance: BRIMONIDINE TARTRATE
  11. LEVOTHYROXINE. [Concomitant]
     Active Substance: LEVOTHYROXINE
  12. LUMIGAN [Concomitant]
     Active Substance: BIMATOPROST
  13. RHOPRESSA [Concomitant]
     Active Substance: NETARSUDIL MESYLATE

REACTIONS (4)
  - Neuropathy peripheral [None]
  - Dry mouth [None]
  - Fungal infection [None]
  - Pain in extremity [None]

NARRATIVE: CASE EVENT DATE: 20140101
